FAERS Safety Report 17407602 (Version 1)
Quarter: 2020Q1

REPORT INFORMATION
  Report Type: Spontaneous
  Country: BG (occurrence: BG)
  Receive Date: 20200212
  Receipt Date: 20200212
  Transmission Date: 20200409
  Serious: Yes (Other)
  Sender: FDA-Public Use
  Company Number: BG-ASTRAZENECA-2020SE19651

PATIENT
  Age: 59 Year
  Sex: Female

DRUGS (7)
  1. SPIRIVA RESPIMAT [Concomitant]
     Active Substance: TIOTROPIUM BROMIDE
     Route: 055
     Dates: start: 201503
  2. METFORMIN [Concomitant]
     Active Substance: METFORMIN HYDROCHLORIDE
  3. NORVASC [Concomitant]
     Active Substance: AMLODIPINE BESYLATE
  4. SYSTEM CORTICOSTEROID [Concomitant]
     Dosage: MONTHLY
     Route: 055
     Dates: start: 201503
  5. NEBILET [Concomitant]
     Active Substance: NEBIVOLOL
  6. FASENRA [Suspect]
     Active Substance: BENRALIZUMAB
     Indication: ASTHMA
     Route: 058
     Dates: start: 20200205
  7. FLUTIFORM [Concomitant]
     Active Substance: FLUTICASONE PROPIONATE\FORMOTEROL FUMARATE
     Route: 055
     Dates: start: 201503

REACTIONS (6)
  - Micturition urgency [Unknown]
  - Myocardial infarction [Not Recovered/Not Resolved]
  - Myocardial ischaemia [Unknown]
  - Chest pain [Recovered/Resolved]
  - Electrocardiogram ST segment depression [Not Recovered/Not Resolved]
  - Hypoglycaemia [Recovered/Resolved]

NARRATIVE: CASE EVENT DATE: 20200205
